FAERS Safety Report 6766595-8 (Version None)
Quarter: 2010Q2

REPORT INFORMATION
  Report Type: 
  Country: None (occurrence: None)
  Receive Date: 20100609
  Receipt Date: 20100519
  Transmission Date: 20101027
  Serious: Yes (Hospitalization)
  Sender: FDA-Public Use
  Company Number: 2010000648

PATIENT
  Age: 79 Year
  Sex: Female

DRUGS (16)
  1. ERLOTINIB   (ERLOTINIB) TABLET) [Suspect]
     Indication: NON-SMALL CELL LUNG CANCER
     Dosage: 150 MG QD, ORAL
     Route: 048
     Dates: start: 20090910, end: 20100326
  2. MEGESTROL ACETATE [Concomitant]
  3. DILTIAZEM [Concomitant]
  4. PRILOSEC (OMEPRAZOLE) [Concomitant]
  5. PEPCID [Concomitant]
  6. COMPAZINE [Concomitant]
  7. WARFARIN (WAFARIN) [Concomitant]
  8. OMEPRAZOLE [Concomitant]
  9. METOPROLOL SUCCINATE [Concomitant]
  10. SENNA (SENNA) [Concomitant]
  11. CARDIZEM [Concomitant]
  12. ADVAIR DISKUS 100/50 [Concomitant]
  13. ABUTEROL (SALBUTAMOL) [Concomitant]
  14. DUNONEB [Concomitant]
  15. SINGULAIR [Concomitant]
  16. COMBIVENT [Concomitant]

REACTIONS (7)
  - DEEP VEIN THROMBOSIS [None]
  - DRUG DOSE OMISSION [None]
  - HYPONATRAEMIA [None]
  - PNEUMONIA [None]
  - SMALL INTESTINAL OBSTRUCTION [None]
  - SMALL INTESTINAL PERFORATION [None]
  - SUPRAVENTRICULAR TACHYCARDIA [None]
